FAERS Safety Report 6146346-0 (Version None)
Quarter: 2009Q2

REPORT INFORMATION
  Report Type: 
  Country: None (occurrence: None)
  Receive Date: 20090407
  Receipt Date: 20090326
  Transmission Date: 20091009
  Serious: Yes (Hospitalization)
  Sender: FDA-Public Use
  Company Number: FR-PFIZER INC-2009189047

PATIENT

DRUGS (4)
  1. ORELOX [Suspect]
     Dosage: 100MG/DAY
     Route: 048
     Dates: start: 20080910, end: 20081003
  2. PYOSTACINE [Suspect]
     Indication: PYREXIA
     Dosage: 3G/DAY
     Route: 048
     Dates: start: 20081010, end: 20081013
  3. VANCOMYCIN [Concomitant]
     Indication: HYPERTHERMIA
     Dosage: UNK
     Route: 042
     Dates: start: 20081001
  4. AZACTAM [Concomitant]
     Dosage: UNK
     Route: 042
     Dates: start: 20081013, end: 20081014

REACTIONS (1)
  - DRUG RASH WITH EOSINOPHILIA AND SYSTEMIC SYMPTOMS [None]
